FAERS Safety Report 9059293 (Version 1)
Quarter: 2013Q1

REPORT INFORMATION
  Report Type: Spontaneous
  Country: IN (occurrence: IN)
  Receive Date: 20130211
  Receipt Date: 20130211
  Transmission Date: 20140127
  Serious: Yes (Other)
  Sender: FDA-Public Use
  Company Number: IN-JNJFOC-20130204279

PATIENT
  Sex: Male

DRUGS (2)
  1. NICORETTE MICROTAB [Suspect]
     Indication: SMOKING CESSATION THERAPY
     Route: 065
     Dates: start: 201201, end: 201209
  2. NICORETTE QUICKMIST [Suspect]
     Indication: SMOKING CESSATION THERAPY
     Dosage: 35 SPRAYS PER DAY
     Route: 065

REACTIONS (2)
  - Nicotine dependence [Unknown]
  - Intentional drug misuse [Unknown]
